FAERS Safety Report 8297130-3 (Version None)
Quarter: 2012Q2

REPORT INFORMATION
  Report Type: 
  Country: None (occurrence: None)
  Receive Date: 20120419
  Receipt Date: 20120416
  Transmission Date: 20120825
  Serious: No
  Sender: FDA-Public Use
  Company Number: US-PFIZER INC-2012094266

PATIENT
  Sex: Male
  Weight: 90.703 kg

DRUGS (3)
  1. ALAVERT [Suspect]
     Indication: RHINORRHOEA
  2. ALAVERT [Suspect]
     Indication: SNEEZING
     Dosage: 10 MG, 1X/DAY
     Route: 048
     Dates: start: 20120416
  3. ALAVERT [Suspect]
     Indication: EYE PRURITUS

REACTIONS (4)
  - SNEEZING [None]
  - RHINORRHOEA [None]
  - EYE PRURITUS [None]
  - DRUG INEFFECTIVE [None]
